FAERS Safety Report 23833330 (Version 1)
Quarter: 2024Q2

REPORT INFORMATION
  Report Type: Spontaneous
  Country: CA (occurrence: CA)
  Receive Date: 20240508
  Receipt Date: 20240508
  Transmission Date: 20240715
  Serious: Yes (Other)
  Sender: FDA-Public Use
  Company Number: CA-TEVA-VS-3195779

PATIENT
  Sex: Female

DRUGS (10)
  1. MONTELUKAST [Suspect]
     Active Substance: MONTELUKAST SODIUM
     Dosage: DOSE FORM: NOT SPECIFIED
     Route: 065
  2. RISEDRONATE SODIUM [Suspect]
     Active Substance: RISEDRONATE SODIUM
     Indication: Osteoporosis
     Route: 048
  3. CYCLOBENZAPRINE [Concomitant]
     Active Substance: CYCLOBENZAPRINE
     Route: 065
  4. ESOMEPRAZOLE [Concomitant]
     Active Substance: ESOMEPRAZOLE
     Dosage: DOSE FORM: NOT SPECIFIED
     Route: 065
  5. FLUTICASONE?PROPIONATE/SALMETER?OL [Concomitant]
     Route: 055
  6. NAPROXEN [Concomitant]
     Active Substance: NAPROXEN
     Dosage: DOSE FORM: NOT SPECIFIED
     Route: 065
  7. ALBUTEROL [Concomitant]
     Active Substance: ALBUTEROL
     Dosage: DOSE FORM: NOT SPECIFIED
     Route: 065
  8. SYNTHROID [Concomitant]
     Active Substance: LEVOTHYROXINE SODIUM
     Dosage: DOSE FORM: NOT SPECIFIED
     Route: 065
  9. TECNAL [Concomitant]
     Dosage: DOSE FORM: NOT SPECIFIED
     Route: 065
  10. UBRELVY [Concomitant]
     Active Substance: UBROGEPANT
     Route: 065

REACTIONS (12)
  - Pyrexia [Unknown]
  - Arthralgia [Unknown]
  - Back pain [Unknown]
  - Blood pressure increased [Unknown]
  - C-reactive protein increased [Unknown]
  - Headache [Unknown]
  - C-reactive protein increased [Unknown]
  - Delirium [Unknown]
  - Diarrhoea [Unknown]
  - Fatigue [Unknown]
  - Nausea [Unknown]
  - Palpitations [Unknown]
